FAERS Safety Report 12086694 (Version 1)
Quarter: 2016Q1

REPORT INFORMATION
  Report Type: Spontaneous
  Country: US (occurrence: US)
  Receive Date: 20160217
  Receipt Date: 20160217
  Transmission Date: 20160526
  Serious: No
  Sender: FDA-Public Use
  Company Number: US-ALLERGAN-1503141US

PATIENT
  Sex: Female

DRUGS (6)
  1. VITAMIN B12 [Concomitant]
     Active Substance: CYANOCOBALAMIN
     Indication: IMMUNE SYSTEM DISORDER
     Dosage: 1 DF, QD
  2. VITAMIN D                          /00107901/ [Concomitant]
     Active Substance: ERGOCALCIFEROL
     Indication: VITAMIN D DEFICIENCY
     Dosage: 1 DF, QD
  3. RESTASIS [Suspect]
     Active Substance: CYCLOSPORINE
     Dosage: 1 DROP 2 X EACH EYE (DAILY 2 X)
     Route: 047
     Dates: start: 201412, end: 20150218
  4. CALTRATE D                         /00944201/ [Concomitant]
     Indication: OSTEOPENIA
     Dosage: 1 DF, QD
  5. RESTASIS [Suspect]
     Active Substance: CYCLOSPORINE
     Indication: DRY EYE
     Dosage: 1 DROP 2 X EACH EYE (DAILY 2 X)
     Route: 047
     Dates: start: 201412, end: 20150218
  6. RESTASIS [Suspect]
     Active Substance: CYCLOSPORINE
     Dosage: UNK
     Route: 047

REACTIONS (3)
  - Eye pain [Unknown]
  - Vision blurred [Not Recovered/Not Resolved]
  - Eye irritation [Not Recovered/Not Resolved]
